FAERS Safety Report 5614148-7 (Version None)
Quarter: 2008Q1

REPORT INFORMATION
  Report Type: 
  Country: None (occurrence: None)
  Receive Date: 20080205
  Receipt Date: 20080124
  Transmission Date: 20080703
  Serious: Yes (Hospitalization, Congenital Anomaly)
  Sender: FDA-Public Use
  Company Number: A0680196A

PATIENT
  Sex: Male
  Weight: 2.2 kg

DRUGS (9)
  1. PAXIL [Suspect]
     Indication: POSTPARTUM DEPRESSION
     Dosage: 20MG PER DAY
     Dates: start: 19930701, end: 19931201
  2. TERBUTALINE SULFATE [Concomitant]
  3. ADALAT [Concomitant]
  4. IBUPROFEN [Concomitant]
  5. HYDROXYZINE [Concomitant]
  6. HALCION [Concomitant]
  7. VISTARIL [Concomitant]
  8. TYLENOL [Concomitant]
  9. PRENATAL VITAMINS [Concomitant]

REACTIONS (40)
  - ASTHMA [None]
  - ATRIAL SEPTAL DEFECT [None]
  - BUNDLE BRANCH BLOCK RIGHT [None]
  - CAESAREAN SECTION [None]
  - CARDIAC MURMUR [None]
  - CARDIOMEGALY [None]
  - CHEST PAIN [None]
  - CONGENITAL AORTIC ANOMALY [None]
  - CONVULSION [None]
  - CYSTIC LYMPHANGIOMA [None]
  - DEAFNESS [None]
  - DEHYDRATION [None]
  - DRUG EXPOSURE DURING PREGNANCY [None]
  - FALLOT'S TETRALOGY [None]
  - FIBRINOUS BRONCHITIS [None]
  - HYPERBILIRUBINAEMIA [None]
  - LEFT VENTRICULAR HEAVE [None]
  - LUNG INFILTRATION [None]
  - MITRAL VALVE INCOMPETENCE [None]
  - NEONATAL DISORDER [None]
  - NEONATAL RESPIRATORY DISTRESS SYNDROME [None]
  - NOONAN SYNDROME [None]
  - PATENT DUCTUS ARTERIOSUS [None]
  - PERSISTENT FOETAL CIRCULATION [None]
  - PLEURAL EFFUSION [None]
  - PNEUMONIA [None]
  - PNEUMONITIS [None]
  - POST PROCEDURAL COMPLICATION [None]
  - PREMATURE BABY [None]
  - PULMONARY VALVE INCOMPETENCE [None]
  - PULMONARY VALVE STENOSIS [None]
  - RESPIRATORY DISTRESS [None]
  - RESPIRATORY FAILURE [None]
  - RESPIRATORY TRACT INFECTION [None]
  - RIGHT VENTRICLE OUTFLOW TRACT OBSTRUCTION [None]
  - RIGHT VENTRICULAR HYPERTROPHY [None]
  - TRICUSPID VALVE INCOMPETENCE [None]
  - VENA CAVA THROMBOSIS [None]
  - VENTRICULAR SEPTAL DEFECT [None]
  - VOMITING [None]
